FAERS Safety Report 9688713 (Version 2)
Quarter: 2013Q4

REPORT INFORMATION
  Report Type: Spontaneous
  Country: GB (occurrence: None)
  Receive Date: 20131112
  Receipt Date: 20131119
  Transmission Date: 20140711
  Serious: Yes (Hospitalization)
  Sender: FDA-Public Use
  Company Number: AUR-APL-2013-09335

PATIENT
  Sex: Female

DRUGS (1)
  1. RAMIPRIL (RAMIPRIL) [Suspect]
     Indication: PRODUCT USED FOR UNKNOWN INDICATION
     Dosage: 5 MG 2 IN 1 D

REACTIONS (8)
  - Swollen tongue [None]
  - Lip swelling [None]
  - Pharyngeal oedema [None]
  - Wheezing [None]
  - Cough [None]
  - Chest discomfort [None]
  - Throat tightness [None]
  - Drug hypersensitivity [None]
